FAERS Safety Report 9540056 (Version 1)
Quarter: 2013Q2

REPORT INFORMATION
  Report Type: Spontaneous
  Country: US (occurrence: None)
  Receive Date: 20130524
  Receipt Date: 20130524
  Transmission Date: 20140414
  Serious: No
  Sender: FDA-Public Use
  Company Number: PHEH2013US004972

PATIENT
  Sex: 0

DRUGS (1)
  1. GILENYA (FINGOLIMOD) CAPSULE [Suspect]
     Dosage: UNK, ORALL
     Route: 048

REACTIONS (1)
  - Bradycardia [None]
